FAERS Safety Report 15538774 (Version 1)
Quarter: 2018Q4

REPORT INFORMATION
  Report Type: Spontaneous
  Country: US (occurrence: US)
  Receive Date: 20181022
  Receipt Date: 20181022
  Transmission Date: 20190205
  Serious: No
  Sender: FDA-Public Use
  Company Number: US-SA-2018SA290776

PATIENT
  Age: 48 Year
  Sex: Female

DRUGS (18)
  1. TESSALON [Concomitant]
     Active Substance: BENZONATATE
     Dosage: 1 DF
     Route: 048
     Dates: start: 20151027
  2. NORMAL SALINE [Concomitant]
     Active Substance: SODIUM CHLORIDE
     Dosage: 0.9 %; DILUTE
     Route: 042
     Dates: start: 20180502
  3. EPINEPHRINE. [Concomitant]
     Active Substance: EPINEPHRINE
     Indication: ANAPHYLACTIC REACTION
     Dosage: 0.3 MG
     Route: 030
     Dates: start: 20180502
  4. VITAMIN D [Concomitant]
     Active Substance: CHOLECALCIFEROL
     Dosage: 1 DF
     Route: 048
     Dates: start: 20120815
  5. CALCIUM [Concomitant]
     Active Substance: CALCIUM
     Dosage: 1 DF
     Route: 048
     Dates: start: 20120814
  6. ACIDOPHILUS PROBIOTIC [Concomitant]
     Dosage: 1 DF
     Route: 048
     Dates: start: 20120814
  7. FABRAZYME [Suspect]
     Active Substance: AGALSIDASE BETA
     Indication: FABRY^S DISEASE
  8. DIPHENHYDRAMINE. [Concomitant]
     Active Substance: DIPHENHYDRAMINE
     Indication: ANAPHYLACTIC REACTION
     Dosage: 25 MG BY MOUTH
     Dates: start: 20180502
  9. RANITIDINE. [Concomitant]
     Active Substance: RANITIDINE
     Dosage: 1 DF, QD
     Route: 048
     Dates: start: 20171213
  10. PLAQUENIL [Concomitant]
     Active Substance: HYDROXYCHLOROQUINE SULFATE
     Dosage: 1 DF, BID
     Route: 048
     Dates: start: 20051027
  11. AUGMENTIN [AMOXICILLIN;CLAVULANIC ACID] [Concomitant]
     Dosage: 875 MG, Q12H
     Route: 048
     Dates: start: 20150930
  12. FABRAZYME [Suspect]
     Active Substance: AGALSIDASE BETA
     Indication: LIPIDOSIS
     Dosage: 70 MG, EVERY 2 WEEKS
     Route: 041
  13. VENTOLINE [SALBUTAMOL] [Concomitant]
     Dosage: 2 PUFFS EVERY 4 HOURS
     Dates: start: 20150930
  14. BIOTIN [Concomitant]
     Active Substance: BIOTIN
     Dosage: 1 DF
     Route: 048
     Dates: start: 20120815
  15. SODIUM CHLORIDE. [Concomitant]
     Active Substance: SODIUM CHLORIDE
     Indication: FLUSHING
     Dosage: 0.9 %
     Route: 042
     Dates: start: 20180502
  16. STERILE WATER [Concomitant]
     Active Substance: WATER
     Dosage: 10 ML; RECON
     Route: 042
     Dates: start: 20180502
  17. CHANTIX [Concomitant]
     Active Substance: VARENICLINE TARTRATE
     Dosage: 0.5 TAB BY MOUTH TWICE DAILY
     Route: 048
     Dates: start: 20180208
  18. MUCINEX [Concomitant]
     Active Substance: GUAIFENESIN
     Dosage: 1 DF
     Route: 048
     Dates: start: 20160830

REACTIONS (1)
  - Sinusitis [Unknown]
